FAERS Safety Report 8501830-7 (Version None)
Quarter: 2012Q3

REPORT INFORMATION
  Report Type: 
  Country: None (occurrence: None)
  Receive Date: 20120705
  Receipt Date: 20120705
  Transmission Date: 20120928
  Serious: Yes (Other)
  Sender: FDA-Public Use
  Company Number: None

PATIENT
  Age: 60 Year
  Sex: Male
  Weight: 83.9154 kg

DRUGS (2)
  1. MELOXICAM [Suspect]
     Indication: ARTHRITIS
     Dosage: 7.5 MG 2XDAY PO
     Route: 048
     Dates: start: 20120626, end: 20120701
  2. MELOXICAM [Suspect]
     Indication: BACK PAIN
     Dosage: 7.5 MG 2XDAY PO
     Route: 048
     Dates: start: 20120626, end: 20120701

REACTIONS (3)
  - HYPERSOMNIA [None]
  - FATIGUE [None]
  - ASTHENIA [None]
